FAERS Safety Report 25642894 (Version 1)
Quarter: 2025Q3

REPORT INFORMATION
  Report Type: Spontaneous
  Country: EU (occurrence: EU)
  Receive Date: 20250805
  Receipt Date: 20250805
  Transmission Date: 20251021
  Serious: Yes (Life-Threatening, Hospitalization)
  Sender: AUROBINDO
  Company Number: EU-LRB-01077698

PATIENT
  Age: 63 Year
  Sex: Male
  Weight: 75 kg

DRUGS (2)
  1. QUETIAPINE [Suspect]
     Active Substance: QUETIAPINE
     Indication: Sleep disorder
     Route: 048
     Dates: start: 20200101
  2. LITHIUM [Suspect]
     Active Substance: LITHIUM
     Indication: Bipolar II disorder
     Route: 048
     Dates: start: 20000102

REACTIONS (1)
  - Antipsychotic drug level increased [Recovered/Resolved]
